FAERS Safety Report 4412291-1 (Version None)
Quarter: 2004Q2

REPORT INFORMATION
  Report Type: 
  Country: None (occurrence: None)
  Receive Date: 20040630
  Receipt Date: 20040317
  Transmission Date: 20050107
  Serious: No
  Sender: FDA-Public Use
  Company Number: 04P-163-0253770-00

PATIENT
  Age: 50 Year
  Sex: Female

DRUGS (6)
  1. HUMIRA [Suspect]
     Indication: RHEUMATOID ARTHRITIS
     Dosage: 40 MG, 1 IN 2 WK, SUBCUTANEOUS
     Route: 058
     Dates: start: 20040205
  2. ALPRAZOLAM [Concomitant]
  3. HYDROCHLOROQUINE PHOSPHATE [Concomitant]
  4. PANTOPRAZOLE [Concomitant]
  5. CONJUGATED ESTROGEN [Concomitant]
  6. CYCLOBENZAPRINE HYDROCHLORIDE [Concomitant]

REACTIONS (4)
  - BURNING SENSATION [None]
  - CHEST PAIN [None]
  - HYPOAESTHESIA [None]
  - THROAT IRRITATION [None]
